FAERS Safety Report 7412619-4 (Version None)
Quarter: 2011Q2

REPORT INFORMATION
  Report Type: 
  Country: None (occurrence: None)
  Receive Date: 20110413
  Receipt Date: 20110404
  Transmission Date: 20111010
  Serious: Yes (Other)
  Sender: FDA-Public Use
  Company Number: TW-SANOFI-AVENTIS-2011SA021713

PATIENT
  Age: 44 Year
  Sex: Female

DRUGS (7)
  1. DOCETAXEL [Suspect]
     Indication: BREAST CANCER
     Dosage: FOUR COURSES
     Route: 065
  2. DOCETAXEL [Suspect]
     Dosage: TWO COURSES
     Route: 065
  3. EPIRUBICIN [Suspect]
     Indication: BREAST CANCER
     Dosage: FOUR COURSES
     Route: 065
  4. TRASTUZUMAB [Suspect]
     Route: 065
  5. LAPATINIB [Concomitant]
     Indication: BREAST CANCER
     Route: 065
  6. TRASTUZUMAB [Suspect]
     Indication: BREAST CANCER
     Dosage: TWO COURSES
     Route: 065
  7. EPIRUBICIN [Suspect]
     Dosage: TWO COURSES
     Route: 065

REACTIONS (6)
  - JAUNDICE [None]
  - ASPARTATE AMINOTRANSFERASE INCREASED [None]
  - NODULAR REGENERATIVE HYPERPLASIA [None]
  - ASCITES [None]
  - ASTHENIA [None]
  - ALANINE AMINOTRANSFERASE INCREASED [None]
